FAERS Safety Report 8942154 (Version 1)
Quarter: 2012Q4

REPORT INFORMATION
  Report Type: 
  Country: JP (occurrence: JP)
  Receive Date: 20121203
  Receipt Date: 20121203
  Transmission Date: 20130627
  Serious: Yes (Death, Hospitalization, Other)
  Sender: FDA-Public Use
  Company Number: JP-PFIZER INC-2012278909

PATIENT
  Age: 82 Year
  Sex: Male
  Weight: 35.1 kg

DRUGS (3)
  1. ZYVOX [Suspect]
     Indication: PNEUMONIA
     Dosage: 600 mg, 1x/day
     Route: 041
     Dates: start: 20121102, end: 20121112
  2. ADONA [Concomitant]
     Indication: MUCOSAL HAEMORRHAGE
     Dosage: 100 mg, 1x/day
     Route: 042
     Dates: start: 20121030, end: 20121105
  3. TRANSAMIN [Concomitant]
     Indication: MUCOSAL HAEMORRHAGE
     Dosage: UNK
     Route: 042
     Dates: start: 20121030, end: 20121105

REACTIONS (2)
  - Drug ineffective [Fatal]
  - Convulsion [Recovering/Resolving]
